FAERS Safety Report 20785153 (Version 1)
Quarter: 2022Q2

REPORT INFORMATION
  Report Type: Spontaneous
  Country: US (occurrence: None)
  Receive Date: 20220504
  Receipt Date: 20220504
  Transmission Date: 20220720
  Serious: Yes (Death)
  Sender: FDA-Public Use
  Company Number: None

PATIENT
  Sex: Male
  Weight: 155.6 kg

DRUGS (8)
  1. CYCLOPHOSPHAMIDE [Suspect]
     Active Substance: CYCLOPHOSPHAMIDE
  2. CYTARABINE [Concomitant]
  3. ONCASPAR [Concomitant]
     Active Substance: PEGASPARGASE
  4. THIOGUANINE ANHYDROUS [Concomitant]
     Active Substance: THIOGUANINE ANHYDROUS
  5. DEXAMETHASONE [Concomitant]
  6. DOXORUBICIN HYDROCHLORIDE [Concomitant]
     Active Substance: DOXORUBICIN HYDROCHLORIDE
  7. METHOTREXATE [Concomitant]
  8. VINCRISTINE SULFATE [Concomitant]

REACTIONS (12)
  - Febrile neutropenia [None]
  - Bone pain [None]
  - Diarrhoea [None]
  - Hypotension [None]
  - Lethargy [None]
  - Abdominal pain [None]
  - Muscle twitching [None]
  - Blood glucose decreased [None]
  - Septic shock [None]
  - Acute kidney injury [None]
  - Haemodynamic instability [None]
  - COVID-19 [None]

NARRATIVE: CASE EVENT DATE: 20220418
